FAERS Safety Report 21129452 (Version 3)
Quarter: 2022Q3

REPORT INFORMATION
  Report Type: Report from Study
  Country: CA (occurrence: CA)
  Receive Date: 20220725
  Receipt Date: 20220922
  Transmission Date: 20221026
  Serious: Yes (Other)
  Sender: FDA-Public Use
  Company Number: CA-JNJFOC-20220742352

PATIENT
  Age: 12 Year
  Sex: Female
  Weight: 34 kg

DRUGS (2)
  1. REMICADE [Suspect]
     Active Substance: INFLIXIMAB
     Indication: Colitis ulcerative
     Dosage: PARTIAL MAYO COMPLETED, 10TH INFUSION
     Route: 042
     Dates: start: 20211207
  2. REMICADE [Suspect]
     Active Substance: INFLIXIMAB
     Dosage: RE-INDUCTION REQUIRED
     Route: 042

REACTIONS (2)
  - Colitis ulcerative [Not Recovered/Not Resolved]
  - Drug level decreased [Unknown]

NARRATIVE: CASE EVENT DATE: 20220601
